FAERS Safety Report 8466710 (Version 2)
Quarter: 2013Q2

REPORT INFORMATION
  Report Type: Spontaneous
  Country: US (occurrence: None)
  Receive Date: 20120228
  Receipt Date: 20130301
  Transmission Date: 20140414
  Serious: Yes (Life-Threatening, Hospitalization)
  Sender: FDA-Public Use
  Company Number: RB-35011-2011

PATIENT
  Age: 12 Month
  Sex: Male

DRUGS (1)
  1. SUBOXONE [Suspect]
     Indication: ACCIDENTAL EXPOSURE TO PRODUCT
     Dosage: ORAL
     Route: 048
     Dates: start: 20111125, end: 20111125

REACTIONS (1)
  - Accidental exposure to product by child [None]
